FAERS Safety Report 25777435 (Version 2)
Quarter: 2025Q3

REPORT INFORMATION
  Report Type: Spontaneous
  Country: CA (occurrence: CA)
  Receive Date: 20250909
  Receipt Date: 20250918
  Transmission Date: 20251021
  Serious: Yes (Other)
  Sender: CELLTRION
  Company Number: CA-CELLTRION INC.-2025CA022983

PATIENT

DRUGS (2)
  1. INFLIXIMAB [Suspect]
     Active Substance: INFLIXIMAB
     Indication: Crohn^s disease
     Dosage: MAINTENANCE - 400 MG - IV (INTRAVENOUS) EVERY 4 WEEKS
     Route: 042
     Dates: start: 20250610
  2. INFLIXIMAB [Suspect]
     Active Substance: INFLIXIMAB
     Dosage: MAINTENANCE - 400 MG - IV (INTRAVENOUS) EVERY 4 WEEKS
     Route: 042
     Dates: start: 20250610

REACTIONS (4)
  - Benign neoplasm of cervix uteri [Unknown]
  - Uterine disorder [Unknown]
  - Abdominal pain [Unknown]
  - Off label use [Unknown]

NARRATIVE: CASE EVENT DATE: 20250610
